FAERS Safety Report 7705396-0 (Version None)
Quarter: 2011Q3

REPORT INFORMATION
  Report Type: 
  Country: None (occurrence: None)
  Receive Date: 20110824
  Receipt Date: 20110816
  Transmission Date: 20111222
  Serious: Yes (Other)
  Sender: FDA-Public Use
  Company Number: US-US-EMD SERONO, INC.-7077449

PATIENT
  Sex: Female

DRUGS (4)
  1. ALLERGY MEDICATIONS [Concomitant]
  2. REBIF [Suspect]
     Indication: MULTIPLE SCLEROSIS
     Route: 058
     Dates: start: 20110622, end: 20110701
  3. REBIF [Suspect]
     Route: 058
     Dates: start: 20110701
  4. REBIF [Suspect]
     Route: 058

REACTIONS (4)
  - INJECTION SITE HAEMATOMA [None]
  - SINUS DISORDER [None]
  - INFLUENZA LIKE ILLNESS [None]
  - PYREXIA [None]
